FAERS Safety Report 8496550-1 (Version None)
Quarter: 2012Q3

REPORT INFORMATION
  Report Type: 
  Country: None (occurrence: None)
  Receive Date: 20120709
  Receipt Date: 20120627
  Transmission Date: 20120928
  Serious: Yes (Hospitalization)
  Sender: FDA-Public Use
  Company Number: AU-ELI_LILLY_AND_COMPANY-AU201207000407

PATIENT
  Age: 54 Year
  Sex: Male

DRUGS (2)
  1. HUMALOG [Suspect]
     Dosage: UNK, UNKNOWN
  2. HUMALOG MIX 75/25 [Suspect]
     Dosage: UNK, UNKNOWN

REACTIONS (3)
  - HYPERGLYCAEMIA [None]
  - DRUG DISPENSING ERROR [None]
  - HOSPITALISATION [None]
